FAERS Safety Report 12671386 (Version 3)
Quarter: 2016Q4

REPORT INFORMATION
  Report Type: Spontaneous
  Country: ES (occurrence: ES)
  Receive Date: 20160822
  Receipt Date: 20161219
  Transmission Date: 20170207
  Serious: Yes (Life-Threatening, Hospitalization, Other)
  Sender: FDA-Public Use
  Company Number: ES-AUROBINDO-AUR-APL-2016-10750

PATIENT
  Age: 51 Year
  Sex: Male

DRUGS (2)
  1. VALSARTAN AND HYDROCHLOROTHIAZIDE [Suspect]
     Active Substance: HYDROCHLOROTHIAZIDE\VALSARTAN
     Indication: PRODUCT USED FOR UNKNOWN INDICATION
     Dosage: UNK
     Dates: start: 2009
  2. OMEPRAZOLE. [Suspect]
     Active Substance: OMEPRAZOLE
     Indication: PRODUCT USED FOR UNKNOWN INDICATION
     Dosage: UNK
     Dates: start: 2009

REACTIONS (12)
  - Wernicke^s encephalopathy [Recovered/Resolved]
  - Ophthalmoplegia [Recovered/Resolved]
  - Vomiting [Recovered/Resolved]
  - Hypomagnesaemia [Recovered/Resolved]
  - Hypophosphataemia [Recovered/Resolved]
  - Right hemisphere deficit syndrome [Recovered/Resolved]
  - Ataxia [Recovered/Resolved]
  - Renal failure [Recovered/Resolved]
  - Nystagmus [Recovered/Resolved]
  - Hallucination, visual [Recovered/Resolved]
  - Hypocalcaemia [Recovered/Resolved]
  - Cerebral vasoconstriction [Recovered/Resolved]

NARRATIVE: CASE EVENT DATE: 20140723
